FAERS Safety Report 7939542-0 (Version None)
Quarter: 2011Q4

REPORT INFORMATION
  Report Type: 
  Country: None (occurrence: None)
  Receive Date: 20111125
  Receipt Date: 20110909
  Transmission Date: 20120403
  Serious: No
  Sender: FDA-Public Use
  Company Number: US-BAYER-2011-089960

PATIENT
  Age: 86 Year
  Sex: Female
  Weight: 91 kg

DRUGS (5)
  1. ALEVE (CAPLET) [Suspect]
     Indication: ARTHRITIS
     Route: 048
  2. DIOVAN [Concomitant]
  3. UNKNOWN [Concomitant]
  4. DOXEPIN [Concomitant]
  5. LOVASTATIN [Concomitant]

REACTIONS (1)
  - NO ADVERSE EVENT [None]
